FAERS Safety Report 9853608 (Version 7)
Quarter: 2014Q3

REPORT INFORMATION
  Report Type: Spontaneous
  Country: US (occurrence: US)
  Receive Date: 20140129
  Receipt Date: 20140926
  Transmission Date: 20150326
  Serious: Yes (Hospitalization, Disabling, Other)
  Sender: FDA-Public Use
  Company Number: US-009507513-1203USA01839

PATIENT
  Sex: Female
  Weight: 58.96 kg

DRUGS (5)
  1. FOSAMAX [Suspect]
     Active Substance: ALENDRONATE SODIUM
     Indication: OSTEOPENIA
     Dosage: 70 MG, QW
     Route: 048
     Dates: start: 2000, end: 20080201
  2. ALENDRONATE SODIUM. [Suspect]
     Active Substance: ALENDRONATE SODIUM
     Indication: OSTEOPENIA
     Dosage: 70 MG, QW
     Route: 048
     Dates: start: 20080216, end: 200905
  3. BONIVA [Suspect]
     Active Substance: IBANDRONATE SODIUM
     Indication: OSTEOPOROSIS
     Dosage: 150 MG, UNK
     Route: 048
     Dates: start: 200904, end: 201105
  4. FOSAMAX [Suspect]
     Active Substance: ALENDRONATE SODIUM
     Indication: OSTEOPOROSIS
  5. ALENDRONATE SODIUM. [Suspect]
     Active Substance: ALENDRONATE SODIUM
     Indication: OSTEOPOROSIS

REACTIONS (31)
  - Dizziness [Recovering/Resolving]
  - Urinary tract infection [Unknown]
  - Limb injury [Unknown]
  - Tuberculosis [Unknown]
  - Muscular weakness [Unknown]
  - Craniotomy [Unknown]
  - Deafness [Unknown]
  - Essential hypertension [Unknown]
  - Skin mass [Unknown]
  - Intramedullary rod insertion [Unknown]
  - Rotator cuff repair [Unknown]
  - Back pain [Unknown]
  - Spinal osteoarthritis [Unknown]
  - Sciatica [Unknown]
  - Uterine leiomyoma [Unknown]
  - Rash [Unknown]
  - Hysterectomy [Unknown]
  - Tinnitus [Unknown]
  - Intramedullary rod insertion [Unknown]
  - Medical device complication [Unknown]
  - Femur fracture [Recovered/Resolved]
  - Appendicectomy [Unknown]
  - Vision blurred [Unknown]
  - Contusion [Unknown]
  - Muscle atrophy [Unknown]
  - Muscle strain [Unknown]
  - Back pain [Unknown]
  - Femur fracture [Recovering/Resolving]
  - Rheumatoid arthritis [Unknown]
  - Hypercholesterolaemia [Unknown]
  - Myalgia [Unknown]

NARRATIVE: CASE EVENT DATE: 2003
